FAERS Safety Report 22787673 (Version 15)
Quarter: 2024Q3

REPORT INFORMATION
  Report Type: Other
  Country: GB (occurrence: GB)
  Receive Date: 20230804
  Receipt Date: 20240921
  Transmission Date: 20241017
  Serious: Yes (Hospitalization, Disabling, Other)
  Sender: MACLEODS
  Company Number: None

PATIENT

DRUGS (20)
  1. ARIPIPRAZOLE [Suspect]
     Active Substance: ARIPIPRAZOLE
     Indication: Product used for unknown indication
     Dosage: 400 MILLIGRAM (INJECTION) (VERY VERY HIGH- AT LEAST 400 MG, FOR YEARS)
     Route: 065
  2. ARIPIPRAZOLE [Suspect]
     Active Substance: ARIPIPRAZOLE
     Dosage: 400 MILLIGRAM (INJECTION)
     Route: 065
     Dates: start: 20090101
  3. ARIPIPRAZOLE [Suspect]
     Active Substance: ARIPIPRAZOLE
     Dosage: 400 MG (SUSPENSION FOR INJECTION (OCCLUSIVE DRESSING TECH, VERY VERY HIGH FOR YEARS)
     Route: 065
     Dates: start: 20091010
  4. ARIPIPRAZOLE [Suspect]
     Active Substance: ARIPIPRAZOLE
     Dosage: UNK (DOSE INCREASED)
     Route: 065
  5. ARIPIPRAZOLE [Suspect]
     Active Substance: ARIPIPRAZOLE
     Route: 065
  6. ARIPIPRAZOLE [Suspect]
     Active Substance: ARIPIPRAZOLE
     Dosage: 400 MILLIGRAM (VERY VERY HIGH- AT LEAST 400 MG, FOR YEARS), PL 00006/0756ELI LILLY AND COMPANY
     Route: 065
     Dates: start: 20090101
  7. OLANZAPINE [Suspect]
     Active Substance: OLANZAPINE
     Indication: Product used for unknown indication
     Dosage: UNK, ORODISPERSIBLE TABLET
     Route: 065
  8. OLANZAPINE [Suspect]
     Active Substance: OLANZAPINE
     Indication: Adverse drug reaction
     Dosage: 120 MILLIGRAM (VERY VERY HIGH), OCCLUSIVE DRESSING TECHNIQUE
     Route: 065
     Dates: start: 20140301
  9. OLANZAPINE [Suspect]
     Active Substance: OLANZAPINE
     Dosage: UNK, OCCLUSIVE DRESSING TECHNIQUE, DOSE DECREASE, ORODISPERSIBLE TABLET
     Route: 065
  10. OLANZAPINE [Suspect]
     Active Substance: OLANZAPINE
     Dosage: OCCLUSIVE DRESSING TECHNIQUE, DOSE DECREASE
     Route: 065
  11. OLANZAPINE [Suspect]
     Active Substance: OLANZAPINE
     Dosage: VERY VERY HIGH
     Route: 065
     Dates: start: 20140301
  12. CLOZAPINE [Suspect]
     Active Substance: CLOZAPINE
     Indication: Product used for unknown indication
     Dosage: UNK (OCCLUSIVE DRESSING TECHNIQUE, DOSE INCREASED)
     Route: 065
  13. CLOZAPINE [Suspect]
     Active Substance: CLOZAPINE
     Dosage: UNK (OCCLUSIVE DRESSING TECHNIQUE)
     Route: 065
  14. CLOZAPINE [Suspect]
     Active Substance: CLOZAPINE
     Dosage: OCCLUSIVE DRESSING TECHNIQUE
     Route: 065
  15. ABILIFY MAINTENA [Suspect]
     Active Substance: ARIPIPRAZOLE
     Indication: Product used for unknown indication
     Dosage: 400 MG (INJECTION) (VERY VERY HIGH- 400 MG, FOR YR) (OTSUKA PHARMACEUTICAL NETHERLANDS B.V)
     Route: 065
  16. ABILIFY MAINTENA [Suspect]
     Active Substance: ARIPIPRAZOLE
     Indication: Adverse drug reaction
     Dosage: 400 MILLIGRAM, VERY VERY HIGH- AT LEAST 400 MG, FOR YEARS, OTSUKA PHARMACEUTICAL NETHERLANDS B.V
     Route: 065
     Dates: start: 20090101
  17. ABILIFY MAINTENA [Suspect]
     Active Substance: ARIPIPRAZOLE
     Dosage: 400 MILLIGRAM, VERY VERY HIGH- AT LEAST 400 MG, FOR YEARS, OTSUKA PHARMACEUTICAL NETHERLANDS B.V
     Route: 065
     Dates: start: 20090101
  18. ABILIFY MAINTENA [Suspect]
     Active Substance: ARIPIPRAZOLE
     Dosage: VERY VERY HIGH- AT LEAST 400 MG, FOR YEARS
     Route: 065
     Dates: start: 20090101
  19. ARIPIPRAZOLE [Suspect]
     Active Substance: ARIPIPRAZOLE
     Indication: Product used for unknown indication
     Dosage: UNK (DOSE INCREASED)400 MILLIGRAM (VERY VERY HIGH- AT LEAST 400 MG, FOR YEARS)
     Route: 065
  20. ARIPIPRAZOLE [Suspect]
     Active Substance: ARIPIPRAZOLE
     Dosage: 400 MILLIGRAM, (AT LEAST 400 MG)
     Route: 065
     Dates: start: 20090101

REACTIONS (31)
  - Irritable bowel syndrome [Unknown]
  - Scratch [Unknown]
  - Personality change [Unknown]
  - Discomfort [Not Recovered/Not Resolved]
  - Irritability [Unknown]
  - Skin irritation [Unknown]
  - Pain [Unknown]
  - Injection site pain [Unknown]
  - Lethargy [Unknown]
  - Visual impairment [Unknown]
  - Tension [Unknown]
  - Somnolence [Unknown]
  - Musculoskeletal stiffness [Unknown]
  - Somnolence [Unknown]
  - Visual impairment [Unknown]
  - Anxiety [Unknown]
  - Diabetes mellitus [Unknown]
  - Akathisia [Unknown]
  - Pain [Unknown]
  - Pruritus [Unknown]
  - Loss of personal independence in daily activities [Unknown]
  - Weight increased [Unknown]
  - Somnolence [Unknown]
  - Pollakiuria [Unknown]
  - Diarrhoea [Not Recovered/Not Resolved]
  - Visual impairment [Unknown]
  - Diarrhoea [Not Recovered/Not Resolved]
  - Diarrhoea [Not Recovered/Not Resolved]
  - Diarrhoea [Not Recovered/Not Resolved]
  - Product use in unapproved indication [Unknown]
  - Product prescribing error [Unknown]

NARRATIVE: CASE EVENT DATE: 20090101
